FAERS Safety Report 11287277 (Version 2)
Quarter: 2015Q3

REPORT INFORMATION
  Report Type: Spontaneous
  Country: IL (occurrence: IL)
  Receive Date: 20150721
  Receipt Date: 20150730
  Transmission Date: 20151125
  Serious: Yes (Hospitalization, Other)
  Sender: FDA-Public Use
  Company Number: IL-PFIZER INC-2015234985

PATIENT
  Age: 31 Year
  Sex: Male

DRUGS (10)
  1. COUMADIN [Concomitant]
     Active Substance: WARFARIN SODIUM
     Dosage: 5 MG, 1X/DAY
     Dates: start: 20140715
  2. ADVIL [Suspect]
     Active Substance: IBUPROFEN
     Dosage: EVERY DAY
  3. CIPRALEX [Concomitant]
     Active Substance: ESCITALOPRAM OXALATE
     Indication: ANXIETY
     Dosage: 15 MG, 1X/DAY
     Route: 048
  4. CLEXANE [Concomitant]
     Active Substance: ENOXAPARIN SODIUM
     Dosage: 80 MG, 1X/DAY
     Route: 058
  5. OMEPRADEX [Concomitant]
     Active Substance: OMEPRAZOLE
     Dosage: 20 MG, 1X/DAY
  6. OPTALGIN [Suspect]
     Active Substance: METAMIZOLE
     Dosage: EVERY DAY
  7. CLEXANE [Concomitant]
     Active Substance: ENOXAPARIN SODIUM
     Dosage: 60 MG, 1X/DAY
     Route: 058
  8. FOLIC ACID. [Concomitant]
     Active Substance: FOLIC ACID
     Dosage: 5 MG, 1X/DAY
  9. CLEXANE [Concomitant]
     Active Substance: ENOXAPARIN SODIUM
     Dosage: 40 MG, 2X/DAY
  10. CLEXANE [Concomitant]
     Active Substance: ENOXAPARIN SODIUM
     Dosage: 60 MG, 2X/DAY

REACTIONS (16)
  - Cardiac arrest [Unknown]
  - Endocarditis [Unknown]
  - Activities of daily living impaired [Unknown]
  - Speech disorder [Unknown]
  - Cardiac failure [Unknown]
  - Gait disturbance [Unknown]
  - Asthenia [Unknown]
  - Restrictive cardiomyopathy [Unknown]
  - Incontinence [Unknown]
  - Faecal incontinence [Unknown]
  - Cerebrovascular accident [Unknown]
  - Hypercoagulation [Unknown]
  - Ischaemic stroke [Recovered/Resolved with Sequelae]
  - Paralysis [Unknown]
  - Intentional product misuse [Unknown]
  - Muscular weakness [Unknown]

NARRATIVE: CASE EVENT DATE: 20141026
